FAERS Safety Report 5336723-X (Version None)
Quarter: 2007Q2

REPORT INFORMATION
  Report Type: 
  Country: None (occurrence: None)
  Receive Date: 20070524
  Receipt Date: 20070524
  Transmission Date: 20071010
  Serious: Yes (Hospitalization)
  Sender: FDA-Public Use
  Company Number: None

PATIENT
  Age: 85 Year
  Sex: Male

DRUGS (1)
  1. DIGOXIN [Suspect]
     Indication: ATRIAL FIBRILLATION
     Dosage: 0.25 MG PO QDAY
     Route: 048

REACTIONS (5)
  - CARDIOACTIVE DRUG LEVEL INCREASED [None]
  - HEART RATE INCREASED [None]
  - NAUSEA [None]
  - NODAL RHYTHM [None]
  - VOMITING [None]
